FAERS Safety Report 24659360 (Version 1)
Quarter: 2024Q4

REPORT INFORMATION
  Report Type: Spontaneous
  Country: US (occurrence: None)
  Receive Date: 20241123
  Receipt Date: 20241123
  Transmission Date: 20250115
  Serious: No
  Sender: Public
  Company Number: None

PATIENT
  Age: 41 Year
  Sex: Male
  Weight: 69.75 kg

DRUGS (1)
  1. ROSUVASTATIN CALCIUM [Suspect]
     Active Substance: ROSUVASTATIN CALCIUM
     Dosage: FREQUENCY : AT BEDTIME;?
     Route: 048
     Dates: start: 20240705, end: 20240927

REACTIONS (5)
  - Abdominal discomfort [None]
  - Abdominal distension [None]
  - Diarrhoea [None]
  - Flatulence [None]
  - Muscle spasms [None]

NARRATIVE: CASE EVENT DATE: 20240920
